FAERS Safety Report 6244318-9 (Version None)
Quarter: 2009Q2

REPORT INFORMATION
  Report Type: 
  Country: None (occurrence: None)
  Receive Date: 20090625
  Receipt Date: 20090616
  Transmission Date: 20091009
  Serious: Yes (Death)
  Sender: FDA-Public Use
  Company Number: US-ROCHE-607758

PATIENT
  Sex: Female
  Weight: 83 kg

DRUGS (8)
  1. PEGASYS [Suspect]
     Indication: HEPATITIS C
     Dosage: STRENGTH: 180 UG/ML
     Route: 058
     Dates: start: 20090102
  2. COPEGUS [Suspect]
     Indication: HEPATITIS C
     Route: 065
     Dates: start: 20090102
  3. ALPRAZOLAM [Concomitant]
  4. SEROQUEL [Concomitant]
     Dosage: DOSE: 1 TABLET EVERY MORNING
  5. FIORINAL W/CODEINE NO 3 [Concomitant]
     Dosage: STRENGTH: 325- 40- 50- 30 MG CAPSULE
  6. LAMICTAL [Concomitant]
     Dosage: DOSE: 1 EVERY MORNING
  7. CALCIUM/VITAMIN D [Concomitant]
     Route: 048
  8. TYLENOL (CAPLET) [Concomitant]
     Dosage: STRENGTH: 25- 500 MG

REACTIONS (10)
  - ABDOMINAL PAIN [None]
  - ANXIETY [None]
  - ARTHRALGIA [None]
  - CARDIAC ARREST [None]
  - DECREASED APPETITE [None]
  - DYSPEPSIA [None]
  - FATIGUE [None]
  - INFLUENZA LIKE ILLNESS [None]
  - INJECTION SITE HAEMORRHAGE [None]
  - WEIGHT DECREASED [None]
